FAERS Safety Report 5152079-X (Version None)
Quarter: 2006Q4

REPORT INFORMATION
  Report Type: 
  Country: None (occurrence: None)
  Receive Date: 20061116
  Receipt Date: 20060426
  Transmission Date: 20070319
  Serious: Yes (Other)
  Sender: FDA-Public Use
  Company Number: US-BAYER-200611790BCC

PATIENT
  Age: 77 Year
  Sex: Female
  Weight: 73 kg

DRUGS (4)
  1. PHILLIPS LIQID GELS - 30'S [Suspect]
     Indication: NASOPHARYNGITIS
     Dosage: TOTAL DAILY DOSE: 300 MG  UNIT DOSE: 100 MG
     Route: 048
     Dates: start: 20060601
  2. ANTIBIOTIC [Concomitant]
  3. BLOOD PRESSURE PILL [Concomitant]
  4. DELACORE [Concomitant]

REACTIONS (4)
  - ABDOMINAL PAIN [None]
  - BLOOD URINE PRESENT [None]
  - DYSURIA [None]
  - MICTURITION DISORDER [None]
